FAERS Safety Report 9744410 (Version 1)
Quarter: 2013Q4

REPORT INFORMATION
  Report Type: Spontaneous
  Country: US (occurrence: US)
  Receive Date: 20131210
  Receipt Date: 20131210
  Transmission Date: 20140711
  Serious: No
  Sender: FDA-Public Use
  Company Number: US-TEVA-450260USA

PATIENT
  Age: 45 Year
  Sex: Female
  Weight: 59.02 kg

DRUGS (3)
  1. PLAN B ONE-STEP [Suspect]
     Indication: POST COITAL CONTRACEPTION
     Dosage: 1.5 MILLIGRAM DAILY;
     Route: 048
     Dates: start: 201310, end: 201310
  2. AMBIEN [Concomitant]
     Indication: SLEEP DISORDER
  3. XANAX [Concomitant]
     Indication: ANXIETY DISORDER

REACTIONS (2)
  - Urinary tract infection [Not Recovered/Not Resolved]
  - Menstruation irregular [Not Recovered/Not Resolved]
